FAERS Safety Report 20484495 (Version 1)
Quarter: 2022Q1

REPORT INFORMATION
  Report Type: Spontaneous
  Country: US (occurrence: US)
  Receive Date: 20220217
  Receipt Date: 20220217
  Transmission Date: 20220423
  Serious: No
  Sender: FDA-Public Use
  Company Number: US-GLAXOSMITHKLINE-USCH2022AMR006368

PATIENT
  Sex: Female

DRUGS (10)
  1. IBUPROFEN [Suspect]
     Active Substance: IBUPROFEN
     Indication: Nodule
     Dosage: 400 MG, TID
     Dates: start: 20211214
  2. COLCHICINE [Suspect]
     Active Substance: COLCHICINE
     Indication: Nodule
     Dosage: 6.8 MG, BID
     Dates: start: 20211214
  3. HYLENEX RECOMBINANT [Suspect]
     Active Substance: HYALURONIDASE (HUMAN RECOMBINANT)
     Indication: Nodule
     Dosage: UNK
     Dates: start: 20220111
  4. PREDNISONE [Suspect]
     Active Substance: PREDNISONE
     Indication: Nodule
     Dosage: 20 MG, FOR 7 DAYS
     Dates: start: 20220111
  5. PREDNISONE [Suspect]
     Active Substance: PREDNISONE
     Dosage: 20 MG
     Dates: start: 20220120
  6. PREDNISONE [Suspect]
     Active Substance: PREDNISONE
     Dosage: 40 MG, 3 DAYS
     Dates: start: 20220125
  7. PREDNISONE [Suspect]
     Active Substance: PREDNISONE
     Dosage: 40 MG, FOR 3 DAYS
     Dates: start: 20220208
  8. PREDNISONE [Suspect]
     Active Substance: PREDNISONE
     Dosage: 20 MG FOR 3 DAYS
  9. HYALURONIC ACID\LIDOCAINE [Suspect]
     Active Substance: HYALURONIC ACID\LIDOCAINE
     Indication: Product used for unknown indication
     Dosage: UNK
     Route: 042
     Dates: start: 20211105
  10. COVID-19 VACCINE [Concomitant]
     Indication: Product used for unknown indication
     Dosage: UNK

REACTIONS (3)
  - Nodule [Unknown]
  - Disease recurrence [Recovering/Resolving]
  - Swelling face [Recovering/Resolving]
